FAERS Safety Report 23236166 (Version 1)
Quarter: 2023Q4

REPORT INFORMATION
  Report Type: Spontaneous
  Country: CA (occurrence: CA)
  Receive Date: 20231128
  Receipt Date: 20231128
  Transmission Date: 20240110
  Serious: Yes (Other)
  Sender: FDA-Public Use
  Company Number: CA-002147023-NVSC2023CA247523

PATIENT
  Age: 58 Year
  Sex: Female

DRUGS (5)
  1. DABRAFENIB [Suspect]
     Active Substance: DABRAFENIB
     Indication: Metastatic malignant melanoma
     Dosage: UNK, CYCLIC
     Route: 065
  2. TRAMETINIB [Suspect]
     Active Substance: TRAMETINIB
     Indication: Metastatic malignant melanoma
     Dosage: UNK, CYCLIC
     Route: 065
  3. BINIMETINIB [Suspect]
     Active Substance: BINIMETINIB
     Indication: Metastatic malignant melanoma
     Dosage: UNK, CYCLIC
     Route: 065
  4. ENCORAFENIB [Suspect]
     Active Substance: ENCORAFENIB
     Indication: Metastatic malignant melanoma
     Dosage: UNK, CYCLIC
     Route: 065
  5. PEMBROLIZUMAB [Suspect]
     Active Substance: PEMBROLIZUMAB
     Indication: Metastatic malignant melanoma
     Dosage: UNK, CYCLIC
     Route: 065

REACTIONS (5)
  - Palmar-plantar erythrodysaesthesia syndrome [Recovered/Resolved]
  - Psoriasis [Recovered/Resolved]
  - Psoriatic arthropathy [Recovered/Resolved]
  - Retinopathy [Recovered/Resolved]
  - Condition aggravated [Recovered/Resolved]
